FAERS Safety Report 8799701 (Version 1)
Quarter: 2012Q4

REPORT INFORMATION
  Report Type: 
  Country: US (occurrence: US)
  Receive Date: 20120919
  Receipt Date: 20120919
  Transmission Date: 20130627
  Serious: Yes (Other)
  Sender: FDA-Public Use
  Company Number: US-AMGEN-USASP2012058901

PATIENT
  Age: 14 Year
  Sex: Female

DRUGS (3)
  1. ENBREL [Suspect]
     Indication: JUVENILE ARTHRITIS
     Dosage: 50 mg, qwk
     Route: 058
     Dates: start: 20120827
  2. METHOTREXATE [Concomitant]
     Dosage: 15 UNK, UNK
     Dates: start: 201204
  3. PREDNISONE [Concomitant]
     Dosage: 5 UNK, UNK
     Dates: start: 201204

REACTIONS (4)
  - Abasia [Recovered/Resolved]
  - Back pain [Not Recovered/Not Resolved]
  - Arthralgia [Not Recovered/Not Resolved]
  - Drug ineffective [Not Recovered/Not Resolved]
